FAERS Safety Report 14653757 (Version 4)
Quarter: 2019Q4

REPORT INFORMATION
  Report Type: Spontaneous
  Country: US (occurrence: US)
  Receive Date: 20180319
  Receipt Date: 20191218
  Transmission Date: 20200122
  Serious: No
  Sender: FDA-Public Use
  Company Number: US-PFIZER INC-2018067578

PATIENT
  Age: 36 Year
  Sex: Female

DRUGS (4)
  1. SUTENT [Suspect]
     Active Substance: SUNITINIB MALATE
     Indication: MASTOCYTOSIS
  2. GLEEVEC [Concomitant]
     Active Substance: IMATINIB MESYLATE
     Dosage: 300 MG, UNK
     Dates: start: 201705, end: 2017
  3. SUTENT [Suspect]
     Active Substance: SUNITINIB MALATE
     Indication: MAST CELL ACTIVATION SYNDROME
     Dosage: 12.5 MG, 1X/DAY (TAKE ONE CAPSULE DAILY^ 28 DAY SUPPLY.)
     Route: 048
     Dates: start: 201709, end: 2017
  4. GLEEVEC [Concomitant]
     Active Substance: IMATINIB MESYLATE
     Dosage: 300 MG, UNK
     Dates: end: 201801

REACTIONS (6)
  - Product use in unapproved indication [Unknown]
  - Flushing [Unknown]
  - Chest discomfort [Unknown]
  - Urticaria [Unknown]
  - Off label use [Unknown]
  - Blood pressure increased [Unknown]

NARRATIVE: CASE EVENT DATE: 2017
